FAERS Safety Report 5089054-X (Version None)
Quarter: 2006Q3

REPORT INFORMATION
  Report Type: 
  Country: None (occurrence: None)
  Receive Date: 20060825
  Receipt Date: 20060817
  Transmission Date: 20061208
  Serious: Yes (Other)
  Sender: FDA-Public Use
  Company Number: 2006UW16655

PATIENT
  Age: 26 Year
  Sex: Male
  Weight: 79.5 kg

DRUGS (5)
  1. PRILOSEC OTC [Suspect]
     Indication: OESOPHAGEAL INJURY
     Route: 048
     Dates: start: 20060807, end: 20060817
  2. CYMBALTA [Concomitant]
  3. TEGRETOL [Concomitant]
  4. SEROQUEL [Concomitant]
     Route: 048
  5. GABITRIL [Concomitant]

REACTIONS (2)
  - CONVULSION [None]
  - DIZZINESS [None]
